FAERS Safety Report 7863260-0 (Version None)
Quarter: 2011Q4

REPORT INFORMATION
  Report Type: 
  Country: None (occurrence: None)
  Receive Date: 20111027
  Receipt Date: 20101201
  Transmission Date: 20120403
  Serious: No
  Sender: FDA-Public Use
  Company Number: US-AMGEN-USASP2010007211

PATIENT
  Age: 56 Year
  Sex: Female

DRUGS (2)
  1. ENBREL [Suspect]
     Indication: PSORIATIC ARTHROPATHY
     Dosage: 50 MG, QWK
     Dates: start: 20100907
  2. ENBREL [Suspect]
     Indication: PSORIASIS

REACTIONS (3)
  - INSOMNIA [None]
  - THROAT IRRITATION [None]
  - OROPHARYNGEAL PAIN [None]
